FAERS Safety Report 25011035 (Version 1)
Quarter: 2025Q1

REPORT INFORMATION
  Report Type: Report from Study
  Country: GB (occurrence: GB)
  Receive Date: 20250225
  Receipt Date: 20250225
  Transmission Date: 20250409
  Serious: Yes (Other)
  Sender: NOVARTIS
  Company Number: GB-002147023-NVSC2025GB028912

PATIENT
  Sex: Female

DRUGS (2)
  1. COSENTYX [Suspect]
     Active Substance: SECUKINUMAB
     Indication: Spinal osteoarthritis
     Dosage: 150 MG (WEEK 0 1 2 3) 2 PRE-FILLED DISPOSABLE INJECTION
     Route: 058
  2. COSENTYX [Suspect]
     Active Substance: SECUKINUMAB
     Dosage: 150 MG, QMO
     Route: 058

REACTIONS (6)
  - Lower respiratory tract infection [Not Recovered/Not Resolved]
  - Gingival disorder [Unknown]
  - Gingival pain [Unknown]
  - Malaise [Unknown]
  - Infection [Unknown]
  - Gingival swelling [Recovering/Resolving]
